FAERS Safety Report 8322896-3 (Version None)
Quarter: 2012Q2

REPORT INFORMATION
  Report Type: 
  Country: None (occurrence: None)
  Receive Date: 20120426
  Receipt Date: 20120308
  Transmission Date: 20120825
  Serious: No
  Sender: FDA-Public Use
  Company Number: US-GDP-11412737

PATIENT
  Sex: Female

DRUGS (1)
  1. DIFFERIN [Suspect]
     Indication: ACNE
     Dosage: TOPICAL
     Route: 061
     Dates: start: 20090101

REACTIONS (4)
  - BURNS SECOND DEGREE [None]
  - BURNS THIRD DEGREE [None]
  - SKIN IRRITATION [None]
  - BLISTER [None]
